FAERS Safety Report 19021439 (Version 1)
Quarter: 2021Q1

REPORT INFORMATION
  Report Type: Spontaneous
  Country: US (occurrence: US)
  Receive Date: 20210317
  Receipt Date: 20210317
  Transmission Date: 20210420
  Serious: No
  Sender: FDA-Public Use
  Company Number: US-PERRIGO-20US002368

PATIENT
  Age: 40 Year
  Sex: Male

DRUGS (5)
  1. VITAMIN C [Concomitant]
     Active Substance: ASCORBIC ACID
     Indication: ROUTINE HEALTH MAINTENANCE
     Dosage: UNK
     Route: 065
     Dates: start: 2019
  2. NICOTINE POLACRILEX [Suspect]
     Active Substance: NICOTINE
     Indication: ELECTRONIC CIGARETTE USER
     Dosage: 4 MG, UNKNOWN
     Route: 002
     Dates: start: 20200128, end: 20200208
  3. OMEPRAZOLE. [Concomitant]
     Active Substance: OMEPRAZOLE
     Indication: GASTROOESOPHAGEAL REFLUX DISEASE
     Dosage: UNK
     Route: 065
     Dates: start: 201912
  4. VITAMIN B12 [Concomitant]
     Active Substance: CYANOCOBALAMIN
     Indication: ROUTINE HEALTH MAINTENANCE
     Dosage: UNK
     Route: 065
     Dates: start: 2019
  5. NICOTINE. [Concomitant]
     Active Substance: NICOTINE
     Indication: ELECTRONIC CIGARETTE USER
     Dosage: UNKNOWN, UNKNOWN
     Route: 055
     Dates: start: 2017

REACTIONS (12)
  - Euphoric mood [Not Recovered/Not Resolved]
  - Dizziness [Recovered/Resolved]
  - Constipation [Not Recovered/Not Resolved]
  - Tongue exfoliation [Not Recovered/Not Resolved]
  - Faeces discoloured [Not Recovered/Not Resolved]
  - Gastrointestinal pain [Unknown]
  - Insomnia [Not Recovered/Not Resolved]
  - Throat irritation [Not Recovered/Not Resolved]
  - Glossodynia [Not Recovered/Not Resolved]
  - Somnambulism [Recovered/Resolved]
  - Glossitis [Not Recovered/Not Resolved]
  - Off label use [Recovered/Resolved]

NARRATIVE: CASE EVENT DATE: 202001
